FAERS Safety Report 8863962 (Version 1)
Quarter: 2012Q4

REPORT INFORMATION
  Report Type: 
  Country: US (occurrence: US)
  Receive Date: 20121024
  Receipt Date: 20121024
  Transmission Date: 20130627
  Serious: No
  Sender: FDA-Public Use
  Company Number: US-AMGEN-USASP2011064968

PATIENT
  Age: 32 Year
  Sex: Female
  Weight: 49.43 kg

DRUGS (9)
  1. ENBREL [Suspect]
     Indication: PRODUCT USED FOR UNKNOWN INDICATION
     Dosage: 50 mg, 2 times/wk
     Route: 058
  2. LEVOTHYROXIN [Concomitant]
     Dosage: 112 mug, UNK
  3. VITAMIN D [Concomitant]
     Dosage: 1000 IU, UNK
  4. CLOBEX [Concomitant]
     Dosage: 0.05 %, UNK
  5. PROTOPIC [Concomitant]
     Dosage: 0.1 %, UNK
  6. METFORMIN [Concomitant]
     Dosage: 1000 mg, UNK
  7. SIMVASTATIN [Concomitant]
     Dosage: 5 mg, UNK
  8. NASONEX [Concomitant]
     Dosage: 50 mug, UNK
  9. ZYRTEC [Concomitant]
     Dosage: 10 mg, UNK

REACTIONS (1)
  - Nasopharyngitis [Unknown]
